FAERS Safety Report 14499073 (Version 2)
Quarter: 2018Q1

REPORT INFORMATION
  Report Type: Report from Study
  Country: JP (occurrence: JP)
  Receive Date: 20180207
  Receipt Date: 20180212
  Transmission Date: 20180509
  Serious: Yes (Other)
  Sender: FDA-Public Use
  Company Number: JP-VIFOR (INTERNATIONAL) INC.-VIT-2016-07569

PATIENT
  Age: 78 Year
  Sex: Male
  Weight: 68.9 kg

DRUGS (20)
  1. ATELEC [Concomitant]
     Active Substance: CILNIDIPINE
     Route: 048
     Dates: start: 20161210, end: 20161222
  2. ALLEGRA [Concomitant]
     Active Substance: FEXOFENADINE HYDROCHLORIDE
     Route: 048
  3. NESP [Concomitant]
     Active Substance: DARBEPOETIN ALFA
     Dates: start: 20170707
  4. VELPHORO [Suspect]
     Active Substance: FERRIC OXYHYDROXIDE
     Indication: HYPERPHOSPHATAEMIA
     Route: 048
     Dates: start: 20160803
  5. OXAROL [Concomitant]
     Active Substance: MAXACALCITOL
     Dates: start: 20160702, end: 20170728
  6. PURSENNID [Concomitant]
     Active Substance: SENNOSIDES A AND B
     Route: 048
  7. ATELEC [Concomitant]
     Active Substance: CILNIDIPINE
     Route: 048
     Dates: end: 20161210
  8. KAYEXALATE [Concomitant]
     Active Substance: SODIUM POLYSTYRENE SULFONATE
     Route: 048
  9. NESP [Concomitant]
     Active Substance: DARBEPOETIN ALFA
     Dates: start: 20170224, end: 20170630
  10. RENAGEL [Concomitant]
     Active Substance: SEVELAMER HYDROCHLORIDE
     Indication: HYPERPHOSPHATAEMIA
     Route: 048
  11. EPADEL [Concomitant]
     Active Substance: ICOSAPENT
     Route: 048
     Dates: start: 20160830
  12. VELPHORO [Suspect]
     Active Substance: FERRIC OXYHYDROXIDE
     Route: 048
     Dates: start: 20160614, end: 20160802
  13. NESP [Concomitant]
     Active Substance: DARBEPOETIN ALFA
     Dates: end: 20161105
  14. GASTER [Concomitant]
     Active Substance: FAMOTIDINE
     Indication: PROPHYLAXIS
     Route: 048
  15. NAUZELIN [Concomitant]
     Active Substance: DOMPERIDONE
     Route: 048
  16. OLMETEC [Concomitant]
     Active Substance: OLMESARTAN MEDOXOMIL
     Route: 048
  17. NESP [Concomitant]
     Active Substance: DARBEPOETIN ALFA
     Dates: start: 20161112, end: 20170217
  18. CALCIUM CARBONATE. [Concomitant]
     Active Substance: CALCIUM CARBONATE
     Indication: HYPERPHOSPHATAEMIA
     Route: 048
     Dates: end: 20160803
  19. OXAROL [Concomitant]
     Active Substance: MAXACALCITOL
     Dates: end: 20160630
  20. OXAROL [Concomitant]
     Active Substance: MAXACALCITOL
     Dates: start: 20170731

REACTIONS (7)
  - Hypertonic bladder [Not Recovered/Not Resolved]
  - Prostate cancer [Not Recovered/Not Resolved]
  - Dizziness [Recovering/Resolving]
  - Ventricular tachycardia [Recovering/Resolving]
  - Hyperphosphataemia [Recovering/Resolving]
  - Hypercalcaemia [Recovering/Resolving]
  - Urge incontinence [Not Recovered/Not Resolved]

NARRATIVE: CASE EVENT DATE: 20160621
